FAERS Safety Report 17554193 (Version 1)
Quarter: 2020Q1

REPORT INFORMATION
  Report Type: Spontaneous
  Country: US (occurrence: US)
  Receive Date: 20200318
  Receipt Date: 20200318
  Transmission Date: 20200409
  Serious: Yes (Hospitalization)
  Sender: FDA-Public Use
  Company Number: NVSC2020US075262

PATIENT
  Age: 75 Year
  Sex: Female

DRUGS (4)
  1. METHYLPREDNISOLONE. [Suspect]
     Active Substance: METHYLPREDNISOLONE
     Indication: HYPERSENSITIVITY
     Dosage: UNK
     Route: 065
  2. DIPHENHYDRAMINE. [Suspect]
     Active Substance: DIPHENHYDRAMINE
     Indication: HYPERSENSITIVITY
     Dosage: UNK
     Route: 065
  3. EPINEPHRINE HYDROGENTARTRATE [Suspect]
     Active Substance: EPINEPHRINE BITARTRATE
     Indication: HYPERSENSITIVITY
     Dosage: 0.5 MG
     Route: 030
  4. FAMOTIDINE. [Suspect]
     Active Substance: FAMOTIDINE
     Indication: HYPERSENSITIVITY
     Dosage: UNK
     Route: 065

REACTIONS (1)
  - Therapeutic response decreased [Unknown]
